FAERS Safety Report 6230479-4 (Version None)
Quarter: 2009Q2

REPORT INFORMATION
  Report Type: 
  Country: None (occurrence: None)
  Receive Date: 20090615
  Receipt Date: 20090413
  Transmission Date: 20091009
  Serious: No
  Sender: FDA-Public Use
  Company Number: US-ABBOTT-09P-163-0568061-00

PATIENT
  Sex: Female
  Weight: 69.462 kg

DRUGS (3)
  1. TRILIPIX [Suspect]
     Indication: HYPERCHOLESTEROLAEMIA
     Route: 048
     Dates: start: 20090309, end: 20090409
  2. ACTONEL [Concomitant]
     Indication: OSTEOPENIA
     Route: 048
  3. GLYPIZDE XL [Concomitant]
     Indication: TYPE 2 DIABETES MELLITUS
     Route: 048

REACTIONS (1)
  - DYSPNOEA [None]
